FAERS Safety Report 24606439 (Version 1)
Quarter: 2024Q4

REPORT INFORMATION
  Report Type: Spontaneous
  Country: BR (occurrence: BR)
  Receive Date: 20241112
  Receipt Date: 20241112
  Transmission Date: 20250115
  Serious: Yes (Other)
  Sender: NOVARTIS
  Company Number: BR-002147023-NVSC2024BR189464

PATIENT
  Age: 28 Year
  Sex: Female
  Weight: 115 kg

DRUGS (4)
  1. KESIMPTA [Suspect]
     Active Substance: OFATUMUMAB
     Indication: Multiple sclerosis
     Dosage: 1 DOSAGE FORM, QMO (DOES NOT HAVE (MANAGED IN ANOTHER CITY-XXX ON 09SEP2024)
     Route: 058
     Dates: start: 20240909
  2. LACOSAMIDE [Concomitant]
     Active Substance: LACOSAMIDE
     Indication: Neuralgia
     Dosage: UNK (1 CAPSULE  100MG  EVERY 12  HOURS)
     Route: 048
     Dates: start: 202401
  3. PREGABALIN [Concomitant]
     Active Substance: PREGABALIN
     Indication: Depression
     Dosage: UNK (1 CAPSULE  75MG  EVERY 12  HOURS)
     Route: 048
     Dates: start: 202308
  4. DESVENLAFAXINE [Concomitant]
     Active Substance: DESVENLAFAXINE
     Indication: Depression
     Dosage: UNK (1 CAPSULE  100MG PER  DAY)
     Route: 048
     Dates: start: 202308

REACTIONS (3)
  - Urticaria [Recovered/Resolved]
  - Myalgia [Recovered/Resolved]
  - Pyrexia [Recovered/Resolved]

NARRATIVE: CASE EVENT DATE: 20240909
